FAERS Safety Report 9411702 (Version 1)
Quarter: 2013Q3

REPORT INFORMATION
  Report Type: Spontaneous
  Country: FR (occurrence: FR)
  Receive Date: 20130722
  Receipt Date: 20130722
  Transmission Date: 20140515
  Serious: Yes (Life-Threatening)
  Sender: FDA-Public Use
  Company Number: FR-JNJFOC-20130708808

PATIENT
  Age: 90 Year
  Sex: Female

DRUGS (9)
  1. XARELTO [Suspect]
     Indication: ARRHYTHMIA
     Route: 048
     Dates: start: 20130315, end: 20130628
  2. APROVEL [Concomitant]
     Dosage: 75 UNITS UNSPECIFIED
     Route: 065
     Dates: start: 20130628
  3. APROVEL [Concomitant]
     Route: 065
  4. NEBIVOLOL [Concomitant]
     Route: 065
  5. NEBIVOLOL [Concomitant]
     Route: 065
     Dates: start: 20130624
  6. BURINEX [Concomitant]
     Route: 065
     Dates: end: 20130627
  7. LEVOTHYROX [Concomitant]
     Route: 065
     Dates: start: 20130624
  8. LEVOTHYROX [Concomitant]
     Route: 065
  9. ZOPICLONE [Concomitant]
     Dosage: 7.5 UNITS UNSPECIFIED
     Route: 065
     Dates: start: 20130627

REACTIONS (2)
  - Pulmonary embolism [Not Recovered/Not Resolved]
  - Hepatocellular injury [Not Recovered/Not Resolved]
